FAERS Safety Report 5117927-8 (Version None)
Quarter: 2006Q3

REPORT INFORMATION
  Report Type: 
  Country: None (occurrence: None)
  Receive Date: 20060929
  Receipt Date: 20060117
  Transmission Date: 20061208
  Serious: Yes (Disabling)
  Sender: FDA-Public Use
  Company Number: 2006AP00372

PATIENT
  Age: 28805 Day
  Sex: Female

DRUGS (3)
  1. XYLOCAINE [Suspect]
     Indication: EPIDURAL ANAESTHESIA
     Route: 008
     Dates: start: 20051121, end: 20051123
  2. DROLEPTAN [Suspect]
     Indication: PAIN
     Route: 008
     Dates: start: 20051121, end: 20051123
  3. MORPHINE [Suspect]
     Indication: PAIN
     Route: 008
     Dates: start: 20051121, end: 20051123

REACTIONS (3)
  - ANORECTAL DISORDER [None]
  - ATELECTASIS [None]
  - PARAPLEGIA [None]
